FAERS Safety Report 4661732-3 (Version None)
Quarter: 2005Q2

REPORT INFORMATION
  Report Type: 
  Country: None (occurrence: None)
  Receive Date: 20050513
  Receipt Date: 20050316
  Transmission Date: 20051028
  Serious: Yes (Other)
  Sender: FDA-Public Use
  Company Number: JP-ROCHE-399522

PATIENT
  Age: 72 Year
  Sex: Male

DRUGS (13)
  1. TAMIFLU [Suspect]
     Route: 048
     Dates: start: 20050209
  2. EURODIN [Suspect]
     Indication: INSOMNIA
     Route: 048
     Dates: start: 20040802
  3. HALCION [Suspect]
     Indication: INSOMNIA
     Route: 048
     Dates: start: 20040802
  4. MYSLEE [Suspect]
     Indication: INSOMNIA
     Route: 048
     Dates: start: 20040802
  5. BROVARIN [Suspect]
     Indication: INSOMNIA
     Route: 048
     Dates: start: 20040802
  6. DEPAS [Suspect]
     Indication: INSOMNIA
     Route: 048
     Dates: start: 20041008
  7. CERCINE [Concomitant]
     Indication: DRUG USE FOR UNKNOWN INDICATION
     Route: 048
     Dates: start: 20040802
  8. ATELEC [Concomitant]
     Indication: DRUG USE FOR UNKNOWN INDICATION
     Route: 048
     Dates: start: 20041118
  9. CEREKINON [Concomitant]
     Indication: DRUG USE FOR UNKNOWN INDICATION
     Route: 048
     Dates: start: 20040830
  10. PANALDINE [Concomitant]
     Indication: DRUG USE FOR UNKNOWN INDICATION
     Route: 048
     Dates: start: 20040817
  11. SOLETON [Concomitant]
     Indication: DRUG USE FOR UNKNOWN INDICATION
     Route: 048
  12. WARFARIN POTASSIUM [Concomitant]
     Indication: DRUG USE FOR UNKNOWN INDICATION
     Route: 048
     Dates: start: 20040802
  13. METFORMIN HCL [Concomitant]
     Indication: DRUG USE FOR UNKNOWN INDICATION
     Route: 048
     Dates: start: 20040817

REACTIONS (1)
  - DELIRIUM [None]
